FAERS Safety Report 14107705 (Version 1)
Quarter: 2017Q4

REPORT INFORMATION
  Report Type: Spontaneous
  Country: US (occurrence: US)
  Receive Date: 20171019
  Receipt Date: 20171019
  Transmission Date: 20180321
  Serious: Yes (Hospitalization, Other)
  Sender: FDA-Public Use
  Company Number: US-TARO-2017TAR00390

PATIENT
  Sex: Female
  Weight: 81.18 kg

DRUGS (16)
  1. AMMONIUM LACTATE 12% [Suspect]
     Active Substance: AMMONIUM LACTATE
     Indication: RESPIRATORY ACIDOSIS
  2. HYDROCORTISONE CREAM (FOUGERA PHARMACEUTICALS INC.) [Suspect]
     Active Substance: HYDROCORTISONE
     Indication: HYPERKERATOSIS
     Dosage: UNK UNK, 2X/DAY
     Route: 061
     Dates: start: 201702
  3. COMBIVENT RESPIMAT [Concomitant]
     Active Substance: ALBUTEROL SULFATE\IPRATROPIUM BROMIDE
     Dosage: UNK, AS NEEDED
  4. SAVELLA [Concomitant]
     Active Substance: MILNACIPRAN HYDROCHLORIDE
     Dosage: UNK, 2X/DAY
     Route: 048
  5. FLONASE [Concomitant]
     Active Substance: FLUTICASONE PROPIONATE
     Dosage: UNK, 2X/DAY
     Dates: start: 20140218
  6. AQUAPHOR [Concomitant]
     Active Substance: PETROLATUM
  7. HYDROCORTISONE CREAM (FOUGERA PHARMACEUTICALS INC.) [Suspect]
     Active Substance: HYDROCORTISONE
     Indication: RESPIRATORY ACIDOSIS
  8. ASPIRIN. [Concomitant]
     Active Substance: ASPIRIN
     Dosage: 81 MG, 1X/DAY
  9. HYDROCORTISONE CREAM (FOUGERA PHARMACEUTICALS INC.) [Suspect]
     Active Substance: HYDROCORTISONE
     Indication: UNEVALUABLE EVENT
  10. NEURONTIN [Concomitant]
     Active Substance: GABAPENTIN
     Dosage: 1 TABLETS, 3X/DAY
  11. DICYCLOMINE [Concomitant]
     Active Substance: DICYCLOMINE HYDROCHLORIDE
  12. NITROQUICK [Concomitant]
     Active Substance: NITROGLYCERIN
     Dosage: UNK, AS NEEDED
     Route: 060
  13. AMMONIUM LACTATE 12% [Suspect]
     Active Substance: AMMONIUM LACTATE
     Indication: HYPERKERATOSIS
     Dosage: UNK, 2X/DAY
     Dates: start: 201702
  14. ROBAXIN [Concomitant]
     Active Substance: METHOCARBAMOL
     Dosage: 2 TABLETS, 3X/DAY
  15. PROMETHAZINE [Concomitant]
     Active Substance: PROMETHAZINE\PROMETHAZINE HYDROCHLORIDE
     Dosage: 25 MG, UNK
  16. IPRATROPIUM BROMIDE. [Concomitant]
     Active Substance: IPRATROPIUM BROMIDE

REACTIONS (13)
  - Candida infection [Recovered/Resolved]
  - Thrombosis [Unknown]
  - Cardiac disorder [Not Recovered/Not Resolved]
  - Lung disorder [Not Recovered/Not Resolved]
  - Diaphragmatic paralysis [Unknown]
  - Rash [Unknown]
  - Blister [Unknown]
  - Off label use [Recovered/Resolved]
  - Precancerous cells present [Unknown]
  - Skin burning sensation [Unknown]
  - Pneumonia [Unknown]
  - Dyspnoea [Unknown]
  - Dermal cyst [Unknown]

NARRATIVE: CASE EVENT DATE: 2017
